FAERS Safety Report 9572555 (Version 1)
Quarter: 2013Q4

REPORT INFORMATION
  Report Type: Spontaneous
  Country: FR (occurrence: FR)
  Receive Date: 20131001
  Receipt Date: 20131001
  Transmission Date: 20140711
  Serious: Yes (Death)
  Sender: FDA-Public Use
  Company Number: FR-ASTRAZENECA-2013SE72366

PATIENT
  Age: 72 Year
  Sex: Male

DRUGS (1)
  1. NAROPEINE 0.2% [Suspect]
     Indication: LOCAL ANAESTHESIA
     Route: 008
     Dates: start: 2013, end: 2013

REACTIONS (2)
  - Overdose [Fatal]
  - Arrhythmia [Fatal]
